FAERS Safety Report 4977474-0 (Version None)
Quarter: 2006Q2

REPORT INFORMATION
  Report Type: 
  Country: None (occurrence: None)
  Receive Date: 20060413
  Receipt Date: 20060404
  Transmission Date: 20061013
  Serious: Yes (Death, Life-Threatening, Hospitalization, Disabling, Other)
  Sender: FDA-Public Use
  Company Number: 2006047440

PATIENT
  Age: 68 Year
  Sex: Male
  Weight: 70 kg

DRUGS (16)
  1. ATORVASTATIN CALCIUM [Suspect]
     Indication: HYPERCHOLESTEROLAEMIA
     Dosage: 80 MG (40 MG, 2 IN 1 D), ORAL
     Route: 048
     Dates: start: 20060101, end: 20060316
  2. GABAPENTIN [Concomitant]
  3. BISOPROLOL FUMARATE [Concomitant]
  4. FUROSEMIDE [Concomitant]
  5. ASPIRIN [Concomitant]
  6. OMPERAZOLE (OMPERAZOLE) [Concomitant]
  7. ISOSORBIDE MONONITRATE [Concomitant]
  8. INSULATARD NPH HUMAN [Concomitant]
  9. ACTRAPID (INSULIN) [Concomitant]
  10. CO-CODAMAL (CODEINE PHOSPHATE, PARACETAMOL) [Concomitant]
  11. CLINDAMYCIN [Concomitant]
  12. ALFACACLCIDOL (ALFACALCIDOL) [Concomitant]
  13. ARTHROTEC [Concomitant]
  14. MORPHINE SULFATE [Concomitant]
  15. EICOSAPENTAENOIC ACID (FISH OIL, HYDROGENATED) [Concomitant]
  16. DOSCOSAHEXANOIC ACID (DOCOSAHEXANOIC ACID) [Concomitant]

REACTIONS (3)
  - ARTHRALGIA [None]
  - BLOOD CREATINE PHOSPHOKINASE INCREASED [None]
  - RHABDOMYOLYSIS [None]
